FAERS Safety Report 8991261 (Version 4)
Quarter: 2013Q3

REPORT INFORMATION
  Report Type: Report from Study
  Country: CA (occurrence: CA)
  Receive Date: 20121231
  Receipt Date: 20130708
  Transmission Date: 20140515
  Serious: Yes (Other)
  Sender: FDA-Public Use
  Company Number: CA-ROCHE-1173137

PATIENT
  Age: 49 Year
  Sex: Female
  Weight: 64.07 kg

DRUGS (4)
  1. XOLAIR [Suspect]
     Indication: ASTHMA
     Dosage: 150 MG, 1/MONTH
     Route: 058
     Dates: start: 20070319
  2. XOLAIR [Suspect]
     Dosage: 150 MG, 1/MONTH
     Route: 058
     Dates: start: 20100323
  3. XOLAIR [Suspect]
     Route: 058
     Dates: start: 20081030
  4. VENTOLIN [Concomitant]

REACTIONS (13)
  - Asthma [Recovered/Resolved]
  - Upper respiratory tract infection [Recovering/Resolving]
  - Sinusitis [Unknown]
  - Nasopharyngitis [Unknown]
  - Wheezing [Unknown]
  - Cough [Unknown]
  - Lung infection [Unknown]
  - Blood pressure increased [Unknown]
  - Bronchitis [Recovered/Resolved]
  - Hypersensitivity [Not Recovered/Not Resolved]
  - Peak expiratory flow rate increased [Unknown]
  - Pyrexia [Unknown]
  - Malaise [Unknown]
